FAERS Safety Report 15206916 (Version 1)
Quarter: 2018Q3

REPORT INFORMATION
  Report Type: Spontaneous
  Country: DE (occurrence: DE)
  Receive Date: 20180727
  Receipt Date: 20180727
  Transmission Date: 20181010
  Serious: Yes (Other)
  Sender: FDA-Public Use
  Company Number: DE-ACCORD-069944

PATIENT
  Age: 79 Year
  Sex: Male

DRUGS (2)
  1. METHOTREXATE. [Suspect]
     Active Substance: METHOTREXATE
     Indication: POLYARTHRITIS
  2. PREDNISOLONE. [Concomitant]
     Active Substance: PREDNISOLONE
     Indication: POLYARTHRITIS

REACTIONS (4)
  - Anaplastic lymphoma kinase gene mutation [Unknown]
  - Herpes zoster [Unknown]
  - Angiocentric lymphoma [Unknown]
  - Chronic myelomonocytic leukaemia [Unknown]

NARRATIVE: CASE EVENT DATE: 201309
